FAERS Safety Report 7141282-5 (Version None)
Quarter: 2010Q4

REPORT INFORMATION
  Report Type: 
  Country: None (occurrence: None)
  Receive Date: 20101203
  Receipt Date: 20101203
  Transmission Date: 20110411
  Serious: Yes (Other)
  Sender: FDA-Public Use
  Company Number: None

PATIENT
  Age: 14 Month
  Sex: Female
  Weight: 8.3915 kg

DRUGS (1)
  1. HYLAND'S TEETHING TABLETS HYLAND'S [Suspect]
     Indication: TEETHING
     Dosage: 2-3 TABLETS 4 TIMES A DAY PO
     Route: 048
     Dates: start: 20100215, end: 20101129

REACTIONS (8)
  - ABNORMAL BEHAVIOUR [None]
  - ASTHENIA [None]
  - DYSURIA [None]
  - LETHARGY [None]
  - MUSCULAR WEAKNESS [None]
  - PRODUCT QUALITY ISSUE [None]
  - TREMOR [None]
  - VULVOVAGINAL DRYNESS [None]
